FAERS Safety Report 9976966 (Version 1)
Quarter: 2014Q1

REPORT INFORMATION
  Report Type: Report from Study
  Country: US (occurrence: US)
  Receive Date: 20140306
  Receipt Date: 20140306
  Transmission Date: 20141002
  Serious: No
  Sender: FDA-Public Use
  Company Number: US-ABBVIE-13P-163-1168349-00

PATIENT
  Age: 34 Year
  Sex: Female

DRUGS (6)
  1. HUMIRA [Suspect]
     Indication: CROHN^S DISEASE
     Dates: start: 20130924, end: 20130924
  2. HUMIRA [Suspect]
     Dates: start: 20131008, end: 20131008
  3. HUMIRA [Suspect]
     Dates: start: 20131022
  4. TRAZODONE [Concomitant]
     Indication: PRODUCT USED FOR UNKNOWN INDICATION
  5. EFFEXOR [Concomitant]
     Indication: ANXIETY
  6. EFFEXOR [Concomitant]
     Indication: DEPRESSION

REACTIONS (1)
  - Drug dose omission [Not Recovered/Not Resolved]
